FAERS Safety Report 20425981 (Version 1)
Quarter: 2022Q1

REPORT INFORMATION
  Report Type: Report from Study
  Country: US (occurrence: US)
  Receive Date: 20220204
  Receipt Date: 20220204
  Transmission Date: 20220423
  Serious: No
  Sender: FDA-Public Use
  Company Number: US-EXELIXIS-CABO-21041256

PATIENT
  Sex: Female

DRUGS (2)
  1. CABOMETYX [Suspect]
     Active Substance: CABOZANTINIB S-MALATE
     Indication: Bladder cancer
     Dosage: 40 MG, QD
     Dates: start: 20210517
  2. OPDIVO [Concomitant]
     Active Substance: NIVOLUMAB
     Dosage: UNK

REACTIONS (8)
  - Balance disorder [Unknown]
  - Vision blurred [Unknown]
  - Memory impairment [Unknown]
  - Nausea [Recovered/Resolved]
  - Fatigue [Not Recovered/Not Resolved]
  - Asthenia [Unknown]
  - Dizziness [Not Recovered/Not Resolved]
  - Off label use [Unknown]
